FAERS Safety Report 24445562 (Version 1)
Quarter: 2024Q4

REPORT INFORMATION
  Report Type: Spontaneous
  Country: NL (occurrence: NL)
  Receive Date: 20241016
  Receipt Date: 20241016
  Transmission Date: 20250115
  Serious: Yes (Hospitalization)
  Sender: MYLAN
  Company Number: None

PATIENT
  Age: 85 Year
  Sex: Male
  Weight: 65 kg

DRUGS (17)
  1. AMIODARONE [Suspect]
     Active Substance: AMIODARONE
     Indication: Atrial fibrillation
     Dosage: 100 MILLIGRAM, QD (1 X PER DAY 0. 5 PIECE)
     Route: 065
     Dates: start: 20190516, end: 20240614
  2. LEVOTHYROXINE SODIUM [Concomitant]
     Active Substance: LEVOTHYROXINE SODIUM
     Dosage: 50 MICROGRAM, QD (1 X PER DAY 1 PIECE)
     Route: 065
  3. PANTOPRAZOLE SODIUM [Concomitant]
     Active Substance: PANTOPRAZOLE SODIUM
     Dosage: 20 MILLIGRAM, QD (1 X PER DAY 1 PIECE)
     Route: 048
  4. ISOSORBIDE MONONITRATE [Concomitant]
     Active Substance: ISOSORBIDE MONONITRATE
     Dosage: 120 DOSAGE FORM, QD (1 X PER DAY 4 PIECES)
     Route: 048
  5. CODEINE [Concomitant]
     Active Substance: CODEINE
     Dosage: 10 MILLIGRAM, QD (1 X PER DAY 1 PIECE FOR THE NIGHT)
     Route: 065
  6. APIXABAN [Concomitant]
     Active Substance: APIXABAN
     Dosage: 2.5 MILLIGRAM, BID (2 X PER DAY 1 PIECE)
     Route: 048
  7. CHOLECALCIFEROL [Concomitant]
     Active Substance: CHOLECALCIFEROL
     Dosage: 800 MICROGRAM, QD (1 X PER DAY 1 PIECE OTC)
     Route: 065
  8. CALCIUM CITRATE [Concomitant]
     Active Substance: CALCIUM CITRATE
     Dosage: 1 DOSAGE FORM, QD (1 X PER DAY 1 PIECE OTC)
     Route: 048
  9. TAMSULOSIN HYDROCHLORIDE [Concomitant]
     Active Substance: TAMSULOSIN HYDROCHLORIDE
     Dosage: 0.4 MILLIGRAM, QD (1 X PER DAY 1 PIECE)
     Route: 048
  10. ACETAMINOPHEN [Concomitant]
     Active Substance: ACETAMINOPHEN
     Dosage: 1000 MILLIGRAM, PRN (IF NECESSARY 4 X PER DAY 2 PIECES)
     Route: 048
  11. POLYETHYLENE GLYCOLS [Concomitant]
     Active Substance: POLYETHYLENE GLYCOLS
     Dosage: 1 DOSAGE FORM, QD (1 X PER DAY 1 PIECE)
     Route: 065
  12. PROLIA [Concomitant]
     Active Substance: DENOSUMAB
     Dosage: 1 DOSAGE FORM, Q6MONTH (1 X PER 6 MONTHS 1 PIECE)
     Route: 058
  13. NEBIVOLOL [Concomitant]
     Active Substance: NEBIVOLOL
     Dosage: 2.5 MILLIGRAM, QD (1 X PER DAY 0. 5 PIECE)
     Route: 065
  14. OMEGA 3 [Concomitant]
     Active Substance: CAPSAICIN
     Dosage: 1 DOSAGE FORM, QD (1 X PER DAY 1 PIECE OTC)
     Route: 065
  15. QVAR [Concomitant]
     Active Substance: BECLOMETHASONE DIPROPIONATE
     Dosage: 100 MICROGRAM, BID (2 X PER DAY 1 DOSE)
     Route: 055
  16. ACETAMINOPHEN\TRAMADOL [Concomitant]
     Active Substance: ACETAMINOPHEN\TRAMADOL
     Dosage: 1 DOSAGE FORM, PRN (IF NECESSARY 1 X PER DAY 1 PIECE)
     Route: 048
  17. CYANOCOBALAMIN [Concomitant]
     Active Substance: CYANOCOBALAMIN
     Dosage: 1000 MICROGRAM, QD (1 X PER DAY 1 PIECE OTC)
     Route: 048

REACTIONS (2)
  - Hyponatraemia [Recovered/Resolved]
  - Inappropriate antidiuretic hormone secretion [Recovered/Resolved]
